FAERS Safety Report 5961044-1 (Version None)
Quarter: 2008Q4

REPORT INFORMATION
  Report Type: 
  Country: None (occurrence: None)
  Receive Date: 20081119
  Receipt Date: 20081105
  Transmission Date: 20090506
  Serious: Yes (Hospitalization)
  Sender: FDA-Public Use
  Company Number: ABX55-08-0472

PATIENT
  Age: 69 Year
  Sex: Male
  Weight: 81.6 kg

DRUGS (2)
  1. ABRAXANE [Suspect]
     Indication: METASTATIC MALIGNANT MELANOMA
     Dosage: LAST DOSE PRIOR TO SAE 15SEP08 307.5MG (307.5 MG)
     Dates: start: 20080724
  2. BEVACIZUMAB (BEVACIZUMAB) [Suspect]
     Indication: METASTATIC MALIGNANT MELANOMA
     Dosage: DATE OF LAST DOSE PRIOR TO SAE 15SEP08 873MG (873 MG), INTRAVENOUS
     Route: 042
     Dates: start: 20080724

REACTIONS (4)
  - ATRIAL FIBRILLATION [None]
  - CALCULUS URETERIC [None]
  - DEHYDRATION [None]
  - TACHYCARDIA [None]
